FAERS Safety Report 7457376-0 (Version None)
Quarter: 2011Q2

REPORT INFORMATION
  Report Type: 
  Country: None (occurrence: None)
  Receive Date: 20110504
  Receipt Date: 20110425
  Transmission Date: 20111010
  Serious: No
  Sender: FDA-Public Use
  Company Number: US-JNJFOC-20110410453

PATIENT
  Age: 51 Year
  Sex: Female
  Weight: 61.69 kg

DRUGS (11)
  1. HYDROCHLOROTHIAZIDE [Concomitant]
     Indication: BLOOD PRESSURE
  2. NICOTINE GUM [Concomitant]
  3. ACETAMINOPHEN [Concomitant]
  4. CORTISPORIN [Concomitant]
     Indication: EAR PAIN
     Route: 001
  5. LISINOPRIL [Concomitant]
     Indication: HYPERTENSION
  6. LITHIUM [Concomitant]
     Indication: BIPOLAR DISORDER
  7. ACETAMINOPHEN [Concomitant]
     Indication: PAIN
  8. INVEGA SUSTENNA [Suspect]
     Indication: SCHIZOAFFECTIVE DISORDER BIPOLAR TYPE
     Route: 030
  9. RISPERDAL [Concomitant]
     Indication: SCHIZOAFFECTIVE DISORDER
     Route: 048
  10. ATIVAN [Concomitant]
     Indication: REFUSAL OF TREATMENT BY PATIENT
     Route: 030
  11. MILK OF MAGNESIA TAB [Concomitant]
     Indication: CONSTIPATION

REACTIONS (2)
  - PRODUCT QUALITY ISSUE [None]
  - INCORRECT DOSE ADMINISTERED [None]
